FAERS Safety Report 21754770 (Version 1)
Quarter: 2022Q4

REPORT INFORMATION
  Report Type: Spontaneous
  Country: CN (occurrence: CN)
  Receive Date: 20221220
  Receipt Date: 20221220
  Transmission Date: 20230112
  Serious: Yes (Other)
  Sender: FDA-Public Use
  Company Number: CN-MLMSERVICE-20221201-3956751-1

PATIENT
  Age: 15 Month
  Sex: Male

DRUGS (6)
  1. ALBUTEROL [Suspect]
     Active Substance: ALBUTEROL
     Indication: Bronchitis
     Dosage: NEBULIZED INHALATION TREATMENT
     Route: 055
  2. PROPRANOLOL [Concomitant]
     Active Substance: PROPRANOLOL HYDROCHLORIDE
     Indication: Infantile haemangioma
     Route: 048
  3. PROPRANOLOL [Concomitant]
     Active Substance: PROPRANOLOL HYDROCHLORIDE
     Dosage: GRADUALLY INCREASED BY 0.5 MG/KG EVERY 2 DAYS
     Route: 048
  4. PROPRANOLOL [Concomitant]
     Active Substance: PROPRANOLOL HYDROCHLORIDE
     Dosage: MAINTENANCE DOSE
     Route: 048
  5. BUDESONIDE [Concomitant]
     Active Substance: BUDESONIDE
     Indication: Bronchitis
     Dosage: NEBULIZED INHALATION TREATMENT
     Route: 055
  6. TIMOLOL [Concomitant]
     Active Substance: TIMOLOL
     Indication: Infantile haemangioma
     Route: 061

REACTIONS (2)
  - Infantile haemangioma [Not Recovered/Not Resolved]
  - Condition aggravated [Not Recovered/Not Resolved]
